FAERS Safety Report 16525597 (Version 2)
Quarter: 2019Q3

REPORT INFORMATION
  Report Type: Spontaneous
  Country: US (occurrence: US)
  Receive Date: 20190703
  Receipt Date: 20190807
  Transmission Date: 20191004
  Serious: Yes (Other)
  Sender: FDA-Public Use
  Company Number: US-SA-2019SA174221

PATIENT
  Age: 45 Year
  Sex: Male

DRUGS (3)
  1. LANTUS [Suspect]
     Active Substance: INSULIN GLARGINE
     Indication: TYPE 1 DIABETES MELLITUS
     Dosage: 10 U, QD
     Route: 065
  2. LANTUS [Suspect]
     Active Substance: INSULIN GLARGINE
     Dosage: 12 U, QD
     Route: 065
  3. LANTUS [Suspect]
     Active Substance: INSULIN GLARGINE
     Dosage: 14 U, QD
     Route: 065

REACTIONS (5)
  - Hyperhidrosis [Unknown]
  - Hypoglycaemia [Recovered/Resolved]
  - Feeling abnormal [Unknown]
  - Blood glucose increased [Unknown]
  - Confusional state [Unknown]
